FAERS Safety Report 10629339 (Version 2)
Quarter: 2014Q4

REPORT INFORMATION
  Report Type: Spontaneous
  Country: US (occurrence: US)
  Receive Date: 20141205
  Receipt Date: 20141205
  Transmission Date: 20150529
  Serious: No
  Sender: FDA-Public Use
  Company Number: US-BRISTOL-MYERS SQUIBB COMPANY-21157532

PATIENT
  Age: 63 Year
  Sex: Male
  Weight: 82.54 kg

DRUGS (4)
  1. SODIUM BICARBONATE. [Concomitant]
     Active Substance: SODIUM BICARBONATE
     Route: 048
  2. HYDREA [Concomitant]
     Active Substance: HYDROXYUREA
     Route: 048
  3. SPRYCEL [Suspect]
     Active Substance: DASATINIB
     Indication: CHRONIC MYELOID LEUKAEMIA
     Route: 048
     Dates: start: 20140531
  4. ALLOPURINOL. [Concomitant]
     Active Substance: ALLOPURINOL
     Route: 048

REACTIONS (8)
  - Rash generalised [Unknown]
  - White blood cell count decreased [Unknown]
  - Arthralgia [Unknown]
  - Abdominal distension [Unknown]
  - Red blood cell count decreased [Unknown]
  - Anaemia [Recovering/Resolving]
  - Ear pain [Unknown]
  - Myalgia [Recovered/Resolved]
